FAERS Safety Report 9145728 (Version 5)
Quarter: 2013Q3

REPORT INFORMATION
  Report Type: Spontaneous
  Country: US (occurrence: US)
  Receive Date: 20130307
  Receipt Date: 20130704
  Transmission Date: 20140515
  Serious: Yes (Hospitalization, Other)
  Sender: FDA-Public Use
  Company Number: US-PFIZER INC-2013076372

PATIENT
  Age: 71 Year
  Sex: Male
  Weight: 95.24 kg

DRUGS (20)
  1. SUTENT [Suspect]
     Dosage: 37.5 MG, 1X/DAY
     Dates: start: 20130117, end: 20130328
  2. SUTENT [Suspect]
     Dosage: 25 MG, 1X/DAY
     Dates: start: 20130426
  3. ADVAIR [Concomitant]
     Dosage: 550 MG, 2X/DAY
  4. SPIRIVA [Concomitant]
     Dosage: UNK, 1X/DAY
  5. DALIRESP [Concomitant]
     Dosage: 500 MG, 1X/DAY WITH PEANUT BUTTER (HA)
  6. COUMADIN [Concomitant]
     Dosage: UNK, AS DIRECTED
  7. VITAMIN B12 [Concomitant]
     Dosage: 1000 UG, UNK
  8. VITAMIN D [Concomitant]
     Dosage: 2000 IU, UNK
  9. ALLOPURINOL [Concomitant]
     Dosage: 300 MG, 1X/DAY
  10. ISOSORBIDE MONONITRATE ER [Concomitant]
     Dosage: 60 MG, 1X/DAY
  11. SPIRONOLACTONE [Concomitant]
     Dosage: 25 MG, 1X/DAY
  12. METOPROLOL [Concomitant]
     Dosage: 25 MG, 1X/DAY
  13. FUROSEMIDE [Concomitant]
     Dosage: 40 MG, X 2 Q AM
  14. FUROSEMIDE [Concomitant]
     Dosage: 40 MG, X 1 IN PM
  15. L-THYROXINE [Concomitant]
     Dosage: 75 UG, 1X/DAY
  16. OXYCODONE [Concomitant]
     Dosage: 5 MG, Q 6 HOURS, AS NEEDED
  17. OXYCODONE [Concomitant]
     Dosage: 10 MG, Q 12 HOURS, AS NEEDED
  18. MAPAP [Concomitant]
     Dosage: UNK, AS NEEDED
  19. SANDOSTATIN [Concomitant]
     Dosage: UNK, MONTHLY
  20. OXYGEN [Concomitant]
     Dosage: 8 LITERS VIA NC
     Route: 045

REACTIONS (10)
  - Bronchitis chronic [Unknown]
  - Chronic obstructive pulmonary disease [Unknown]
  - Weight decreased [Not Recovered/Not Resolved]
  - Faeces soft [Not Recovered/Not Resolved]
  - Fatigue [Not Recovered/Not Resolved]
  - Lacrimation increased [Unknown]
  - Pulmonary mass [Unknown]
  - Fall [Unknown]
  - Blood pressure decreased [Unknown]
  - Decreased appetite [Unknown]
